FAERS Safety Report 9561071 (Version 1)
Quarter: 2013Q3

REPORT INFORMATION
  Report Type: Spontaneous
  Country: US (occurrence: US)
  Receive Date: 20130927
  Receipt Date: 20130927
  Transmission Date: 20140515
  Serious: No
  Sender: FDA-Public Use
  Company Number: US-BIOGENIDEC-2013BI056553

PATIENT
  Age: 53 Year
  Sex: Female

DRUGS (6)
  1. TECFIDERA [Suspect]
     Indication: MULTIPLE SCLEROSIS
     Route: 048
     Dates: start: 20130420, end: 20130503
  2. TECFIDERA [Suspect]
     Indication: MULTIPLE SCLEROSIS
     Route: 048
     Dates: start: 20130504
  3. CLONAZEPAM [Concomitant]
  4. EFFEXOR [Concomitant]
  5. LOSARTAN [Concomitant]
  6. LORAZEPAM [Concomitant]

REACTIONS (1)
  - Pruritus [Not Recovered/Not Resolved]
